FAERS Safety Report 7241027-4 (Version None)
Quarter: 2011Q1

REPORT INFORMATION
  Report Type: 
  Country: None (occurrence: None)
  Receive Date: 20110124
  Receipt Date: 20110113
  Transmission Date: 20110831
  Serious: Yes (Hospitalization)
  Sender: FDA-Public Use
  Company Number: CH-NAPPMUNDI-DEU-2010-0006587

PATIENT
  Age: 40 Year
  Sex: Male
  Weight: 70 kg

DRUGS (7)
  1. MORPHINE SULFATE [Suspect]
     Indication: DRUG DEPENDENCE
     Dosage: 1200 MG, DAILY
     Dates: start: 20100407
  2. OMEPRAZOLUM [Concomitant]
  3. SORTIS [Concomitant]
  4. PERINDOPRIL [Concomitant]
  5. ACETYLSALICYLIC ACID [Concomitant]
  6. ATORVASTATIN [Concomitant]
  7. ACE HEMMER [Concomitant]

REACTIONS (2)
  - GYNAECOMASTIA [None]
  - NIPPLE PAIN [None]
